FAERS Safety Report 8935697 (Version 2)
Quarter: 2012Q4

REPORT INFORMATION
  Report Type: 
  Country: DE (occurrence: DE)
  Receive Date: 20121130
  Receipt Date: 20121226
  Transmission Date: 20130627
  Serious: Yes (Life-Threatening, Hospitalization, Other)
  Sender: FDA-Public Use
  Company Number: DE-JNJFOC-20121010648

PATIENT
  Age: 69 Year
  Sex: Female

DRUGS (4)
  1. REMICADE [Suspect]
     Indication: PUSTULAR PSORIASIS
     Dosage: The patient received 2 infusions
     Route: 042
     Dates: start: 20120704
  2. REMICADE [Suspect]
     Indication: PUSTULAR PSORIASIS
     Route: 042
     Dates: start: 20120718
  3. REMICADE [Suspect]
     Indication: PUSTULAR PSORIASIS
     Route: 042
     Dates: start: 20120815
  4. FALITHROM [Concomitant]
     Route: 065

REACTIONS (4)
  - Anaphylactic shock [Recovered/Resolved]
  - Infusion related reaction [Recovered/Resolved]
  - Cardiac failure [Unknown]
  - General physical health deterioration [Not Recovered/Not Resolved]
